FAERS Safety Report 5804565-4 (Version None)
Quarter: 2008Q3

REPORT INFORMATION
  Report Type: 
  Country: None (occurrence: None)
  Receive Date: 20080707
  Receipt Date: 20080707
  Transmission Date: 20090109
  Serious: No
  Sender: FDA-Public Use
  Company Number: None

PATIENT
  Age: 27 Year
  Sex: Male
  Weight: 97.5234 kg

DRUGS (6)
  1. LAMICTAL [Suspect]
     Indication: BIPOLAR DISORDER
     Dosage: 25 MG FOR TWO WEEKS DAILY PO;  50 MG FOR TWO WEEKS DAILY PO
     Route: 048
     Dates: start: 20080602, end: 20080712
  2. LITHIUM CARBONATE [Concomitant]
  3. SERTRALINE [Concomitant]
  4. CLONAZEPAM [Concomitant]
  5. WELLBUTRIN [Concomitant]
  6. TRAZODONE HCL [Concomitant]

REACTIONS (2)
  - GINGIVAL BLEEDING [None]
  - GINGIVAL PAIN [None]
